FAERS Safety Report 18241740 (Version 1)
Quarter: 2020Q3

REPORT INFORMATION
  Report Type: Spontaneous
  Country: US (occurrence: US)
  Receive Date: 20200907
  Receipt Date: 20200907
  Transmission Date: 20201103
  Serious: Yes (Other)
  Sender: FDA-Public Use
  Company Number: None

PATIENT
  Age: 68 Year
  Sex: Female
  Weight: 72 kg

DRUGS (13)
  1. FISH OIL [Suspect]
     Active Substance: FISH OIL
  2. VITAMIN B?COMPLEX [Concomitant]
     Active Substance: DEXPANTHENOL\NIACINAMIDE\PYRIDOXINE HYDROCHLORIDE\RIBOFLAVIN 5^-PHOSPHATE SODIUM\THIAMINE HYDROCHLORIDE
  3. FOMOTIDINE [Concomitant]
  4. MAGNESIUM [Concomitant]
     Active Substance: MAGNESIUM
  5. ION [Concomitant]
  6. DULOXETINE (GENERIC FOR CYMBALTA) CAP 20 MG. [Suspect]
     Active Substance: DULOXETINE
     Indication: NEURALGIA
     Dosage: QUANTITY:1 CAPSULE(S);?
     Route: 048
     Dates: start: 20200903, end: 20200905
  7. SYNTHROID [Concomitant]
     Active Substance: LEVOTHYROXINE SODIUM
  8. MULTIVITAMINS [Concomitant]
     Active Substance: VITAMINS
  9. BIOTIN [Concomitant]
     Active Substance: BIOTIN
  10. VIT D [Concomitant]
     Active Substance: VITAMIN D NOS
  11. OMEPRAZOLE. [Concomitant]
     Active Substance: OMEPRAZOLE
  12. PROBIOTICS [Concomitant]
     Active Substance: PROBIOTICS NOS
  13. ZINC. [Concomitant]
     Active Substance: ZINC

REACTIONS (6)
  - Vomiting [None]
  - Serotonin syndrome [None]
  - Hyperhidrosis [None]
  - Loss of consciousness [None]
  - Fatigue [None]
  - Headache [None]

NARRATIVE: CASE EVENT DATE: 20200905
